FAERS Safety Report 11337906 (Version 1)
Quarter: 2015Q3

REPORT INFORMATION
  Report Type: Spontaneous
  Country: US (occurrence: US)
  Receive Date: 20150803
  Receipt Date: 20150803
  Transmission Date: 20151125
  Serious: No
  Sender: FDA-Public Use
  Company Number: US-ELI_LILLY_AND_COMPANY-US201003002101

PATIENT
  Age: 48 Year
  Sex: Male

DRUGS (2)
  1. ZYPREXA [Suspect]
     Active Substance: OLANZAPINE
     Indication: MAJOR DEPRESSION
     Dosage: 2.5 MG, DAILY (1/D)
     Dates: start: 2003
  2. CYMBALTA [Concomitant]
     Active Substance: DULOXETINE HYDROCHLORIDE

REACTIONS (3)
  - Diabetes mellitus [Not Recovered/Not Resolved]
  - Weight increased [Unknown]
  - Psychiatric decompensation [Unknown]

NARRATIVE: CASE EVENT DATE: 2003
